FAERS Safety Report 13425301 (Version 1)
Quarter: 2017Q2

REPORT INFORMATION
  Report Type: Report from Study
  Country: BR (occurrence: BR)
  Receive Date: 20170411
  Receipt Date: 20170411
  Transmission Date: 20170830
  Serious: Yes (Other)
  Sender: FDA-Public Use
  Company Number: BR-ROCHE-1917576

PATIENT
  Age: 48 Year
  Sex: Male
  Weight: 65 kg

DRUGS (8)
  1. FLUOROURACIL. [Suspect]
     Active Substance: FLUOROURACIL
     Indication: COLORECTAL CANCER
     Route: 065
     Dates: end: 20160216
  2. FOLINIC ACID [Suspect]
     Active Substance: LEUCOVORIN
     Route: 065
     Dates: end: 20160710
  3. OXALIPLATIN. [Suspect]
     Active Substance: OXALIPLATIN
     Indication: COLORECTAL CANCER
     Route: 065
     Dates: end: 20160216
  4. BEVACIZUMAB [Suspect]
     Active Substance: BEVACIZUMAB
     Indication: COLORECTAL CANCER
     Route: 042
     Dates: start: 20151016, end: 20160216
  5. FLUOROURACIL. [Suspect]
     Active Substance: FLUOROURACIL
     Route: 065
     Dates: end: 20160710
  6. BEVACIZUMAB [Suspect]
     Active Substance: BEVACIZUMAB
     Dosage: THERAPY STOPPED ON UNSPECIFIED DATE
     Route: 042
  7. FOLINIC ACID [Suspect]
     Active Substance: LEUCOVORIN
     Indication: COLORECTAL CANCER
     Route: 065
     Dates: end: 20160216
  8. IRINOTECAN [Suspect]
     Active Substance: IRINOTECAN
     Indication: COLORECTAL CANCER
     Route: 065
     Dates: end: 20160710

REACTIONS (2)
  - Drug ineffective [Unknown]
  - Disease progression [Unknown]
